FAERS Safety Report 6283052-6 (Version None)
Quarter: 2009Q3

REPORT INFORMATION
  Report Type: 
  Country: None (occurrence: None)
  Receive Date: 20090724
  Receipt Date: 20090714
  Transmission Date: 20100115
  Serious: Yes (Disabling, Other)
  Sender: FDA-Public Use
  Company Number: GB-PFIZER INC-2009239788

PATIENT
  Age: 43 Year

DRUGS (5)
  1. ATORVASTATIN CALCIUM [Suspect]
     Indication: FAMILIAL HYPERTRIGLYCERIDAEMIA
     Dosage: 40 MG, UNK
     Route: 048
     Dates: start: 20090609, end: 20090619
  2. AMITRIPTYLINE HYDROCHLORIDE [Concomitant]
     Indication: PAIN
     Dosage: 50 MG, UNK
     Route: 048
  3. DICLOFENAC SODIUM [Concomitant]
     Dosage: 75 MG, UNK
     Route: 048
     Dates: start: 20081006
  4. GABAPENTIN [Concomitant]
     Indication: PAIN
     Dosage: 300 MG, 3X/DAY
  5. MORPHINE SULFATE [Concomitant]
     Indication: PAIN

REACTIONS (1)
  - PARAESTHESIA [None]
